FAERS Safety Report 15993829 (Version 1)
Quarter: 2019Q1

REPORT INFORMATION
  Report Type: Spontaneous
  Country: IT (occurrence: IT)
  Receive Date: 20190222
  Receipt Date: 20190222
  Transmission Date: 20190418
  Serious: Yes (Hospitalization)
  Sender: FDA-Public Use
  Company Number: IT-ACCORD-108506

PATIENT
  Age: 47 Year
  Sex: Female

DRUGS (5)
  1. EN [Concomitant]
     Active Substance: DELORAZEPAM
  2. DEPAKIN CHRONO [Concomitant]
     Active Substance: VALPROIC ACID
     Dosage: 300 MG PROLONGED-RELEASE TABLETS
  3. LIBRIUM [Suspect]
     Active Substance: CHLORDIAZEPOXIDE HYDROCHLORIDE
     Indication: INTENTIONAL SELF-INJURY
     Dates: start: 20180505, end: 20180505
  4. QUETIAPINE. [Suspect]
     Active Substance: QUETIAPINE
     Indication: INTENTIONAL SELF-INJURY
     Dates: start: 20180505, end: 20180505
  5. TRIPTYCH [Concomitant]
     Dosage: 75 MG PROLONGED RELEASE TABLETS

REACTIONS (2)
  - Drug abuse [Unknown]
  - Sopor [Unknown]

NARRATIVE: CASE EVENT DATE: 20180505
